FAERS Safety Report 6199605-X (Version None)
Quarter: 2009Q2

REPORT INFORMATION
  Report Type: 
  Country: None (occurrence: None)
  Receive Date: 20090522
  Receipt Date: 20081124
  Transmission Date: 20091009
  Serious: No
  Sender: FDA-Public Use
  Company Number: A0640773A

PATIENT
  Age: 47 Year
  Sex: Female

DRUGS (5)
  1. BACTROBAN [Suspect]
     Indication: NASAL DRYNESS
     Dosage: 1G PER DAY
     Route: 045
     Dates: start: 20061201
  2. OMEPRAZOLE [Concomitant]
  3. NULEV [Concomitant]
  4. PROVERA [Concomitant]
  5. ANTISPASMODIC [Concomitant]

REACTIONS (2)
  - DRUG EFFECT DECREASED [None]
  - DRUG INEFFECTIVE [None]
